FAERS Safety Report 8584021-3 (Version None)
Quarter: 2012Q3

REPORT INFORMATION
  Report Type: 
  Country: None (occurrence: None)
  Receive Date: 20120810
  Receipt Date: 20120723
  Transmission Date: 20120928
  Serious: Yes (Hospitalization, Other)
  Sender: FDA-Public Use
  Company Number: US-MSD-1207USA009932

PATIENT

DRUGS (8)
  1. AMOXICILLIN [Concomitant]
  2. CYANOCOBALAMIN [Concomitant]
  3. PREDNISOLONE [Suspect]
     Dosage: 30 UNK, UNK
     Route: 048
  4. FOLIC ACID [Concomitant]
  5. OMEPRAZOLE [Concomitant]
  6. ZOCOR [Suspect]
     Dosage: 40 MG, UNK
     Route: 048
  7. PREDNISOLONE [Suspect]
     Dosage: 35 MG, UNK
     Route: 048
  8. ALBUTEROL [Concomitant]

REACTIONS (17)
  - RENAL FAILURE ACUTE [None]
  - PLATELET COUNT DECREASED [None]
  - HYPERKALAEMIA [None]
  - DIALYSIS [None]
  - AMYLASE INCREASED [None]
  - BLOOD BICARBONATE DECREASED [None]
  - TACHYCARDIA [None]
  - CHRONIC OBSTRUCTIVE PULMONARY DISEASE [None]
  - ALANINE AMINOTRANSFERASE INCREASED [None]
  - BLOOD PRESSURE INCREASED [None]
  - WHITE BLOOD CELL COUNT INCREASED [None]
  - CONDITION AGGRAVATED [None]
  - HAEMODIALYSIS [None]
  - PAIN [None]
  - BLOOD ALBUMIN DECREASED [None]
  - RHABDOMYOLYSIS [None]
  - DELIRIUM TREMENS [None]
